FAERS Safety Report 16899390 (Version 3)
Quarter: 2019Q4

REPORT INFORMATION
  Report Type: Report from Study
  Country: US (occurrence: US)
  Receive Date: 20191009
  Receipt Date: 20191018
  Transmission Date: 20200122
  Serious: Yes (Hospitalization, Other)
  Sender: FDA-Public Use
  Company Number: US-JNJFOC-20191008863

PATIENT
  Age: 71 Year
  Sex: Male

DRUGS (6)
  1. ZINC. [Concomitant]
     Active Substance: ZINC
  2. LATANOPROST. [Concomitant]
     Active Substance: LATANOPROST
  3. IMBRUVICA [Suspect]
     Active Substance: IBRUTINIB
     Indication: CHRONIC LYMPHOCYTIC LEUKAEMIA
     Dosage: 420 MG, QD
     Route: 048
     Dates: start: 20140522
  4. LEVETIRACETAM. [Concomitant]
     Active Substance: LEVETIRACETAM
  5. LYSINE [Concomitant]
     Active Substance: LYSINE
  6. VITAMIN B-6 [Concomitant]
     Active Substance: PYRIDOXINE

REACTIONS (3)
  - Gastric haemorrhage [Unknown]
  - Drug ineffective [Unknown]
  - Pneumonia [Unknown]

NARRATIVE: CASE EVENT DATE: 20190213
